FAERS Safety Report 9316218 (Version 4)
Quarter: 2013Q4

REPORT INFORMATION
  Report Type: Spontaneous
  Country: GB (occurrence: GB)
  Receive Date: 20130530
  Receipt Date: 20131014
  Transmission Date: 20140711
  Serious: Yes (Life-Threatening, Hospitalization)
  Sender: FDA-Public Use
  Company Number: PHFR2013GB003139

PATIENT
  Age: 53 Year
  Sex: Male

DRUGS (5)
  1. CLOZARIL [Suspect]
     Indication: SCHIZOPHRENIA
     Dosage: UNK
     Route: 048
     Dates: start: 20070813
  2. CLOZARIL [Suspect]
     Dosage: 400 MG, UNK
     Route: 048
  3. ARIPIPRAZOLE [Concomitant]
     Indication: SCHIZOPHRENIA
     Dosage: 5 MG, UNK
     Route: 048
  4. ESCITALOPRAM [Concomitant]
     Indication: DEPRESSION
     Dosage: 20 MG, UNK
     Route: 048
  5. HYOSCINE [Concomitant]
     Indication: SALIVARY HYPERSECRETION
     Dosage: 600 UG, UNK
     Route: 048

REACTIONS (5)
  - Brain abscess [Not Recovered/Not Resolved]
  - Lung infection [Not Recovered/Not Resolved]
  - White blood cell count increased [Unknown]
  - Neutrophil count increased [Unknown]
  - Platelet count decreased [Unknown]
